FAERS Safety Report 16241200 (Version 1)
Quarter: 2019Q2

REPORT INFORMATION
  Report Type: Spontaneous
  Country: CA (occurrence: CA)
  Receive Date: 20190425
  Receipt Date: 20190425
  Transmission Date: 20190711
  Serious: Yes (Life-Threatening)
  Sender: FDA-Public Use
  Company Number: CA-BAXTER-2019BAX008102

PATIENT
  Age: 23 Year
  Sex: Male

DRUGS (20)
  1. IFEX [Suspect]
     Active Substance: IFOSFAMIDE
     Indication: METASTASES TO PANCREAS
  2. LARTRUVO [Suspect]
     Active Substance: OLARATUMAB
     Indication: UNDIFFERENTIATED SARCOMA
     Dosage: MAX OF 8 CYCLES
     Route: 065
     Dates: start: 2018
  3. VINCRISTINE [Suspect]
     Active Substance: VINCRISTINE
     Indication: UNDIFFERENTIATED SARCOMA
     Dosage: 6 ROUNDS OF VIDE CHEMOTHERAPY
     Route: 065
     Dates: start: 20130408, end: 201309
  4. PROCYTOX (CYCLOPHOSPHAMIDE) 2000MG/VIAL [Suspect]
     Active Substance: CYCLOPHOSPHAMIDE
     Indication: METASTASES TO PANCREAS
     Route: 065
     Dates: start: 201901
  5. PAZOPANIB [Suspect]
     Active Substance: PAZOPANIB
     Indication: METASTASES TO PANCREAS
  6. TOPOTECAN [Suspect]
     Active Substance: TOPOTECAN HYDROCHLORIDE
     Indication: METASTASES TO PANCREAS
  7. ETOPOSIDE. [Suspect]
     Active Substance: ETOPOSIDE
     Indication: UNDIFFERENTIATED SARCOMA
     Dosage: 6 ROUNDS OF VIDE CHEMOTHERAPY
     Route: 065
     Dates: start: 20130408, end: 201309
  8. LARTRUVO [Suspect]
     Active Substance: OLARATUMAB
     Indication: METASTASES TO PANCREAS
  9. PROCYTOX (CYCLOPHOSPHAMIDE) 2000MG/VIAL [Suspect]
     Active Substance: CYCLOPHOSPHAMIDE
     Indication: UNDIFFERENTIATED SARCOMA
     Dosage: LOW DOSE CHEMO
     Route: 065
     Dates: start: 2014
  10. GEMCITABINE [Suspect]
     Active Substance: GEMCITABINE\GEMCITABINE HYDROCHLORIDE
     Indication: NEOPLASM RECURRENCE
     Route: 065
     Dates: start: 201606
  11. DOXORUBICIN [Suspect]
     Active Substance: DOXORUBICIN
     Indication: METASTASES TO PANCREAS
     Dosage: MAX OF 8 CYCLES
     Route: 065
     Dates: start: 2018
  12. TOPOTECAN [Suspect]
     Active Substance: TOPOTECAN HYDROCHLORIDE
     Indication: UNDIFFERENTIATED SARCOMA
     Route: 065
     Dates: start: 201901
  13. ETOPOSIDE. [Suspect]
     Active Substance: ETOPOSIDE
     Indication: METASTASES TO PANCREAS
  14. PROCYTOX CYCLOPHOSPHAMIDE TAB50MG [Suspect]
     Active Substance: CYCLOPHOSPHAMIDE
     Indication: METASTASES TO PANCREAS
  15. IFEX [Suspect]
     Active Substance: IFOSFAMIDE
     Indication: UNDIFFERENTIATED SARCOMA
     Dosage: 6 ROUNDS OF VIDE CHEMOTHERAPY
     Route: 065
     Dates: start: 20130408, end: 201309
  16. DOCETAXEL. [Suspect]
     Active Substance: DOCETAXEL
     Indication: NEOPLASM RECURRENCE
     Dosage: TWO ROUNDS OF DOCETAXEL
     Route: 065
     Dates: start: 201606
  17. PAZOPANIB [Suspect]
     Active Substance: PAZOPANIB
     Indication: UNDIFFERENTIATED SARCOMA
     Route: 065
     Dates: start: 201805
  18. VINCRISTINE [Suspect]
     Active Substance: VINCRISTINE
     Indication: METASTASES TO PANCREAS
  19. PROCYTOX CYCLOPHOSPHAMIDE TAB50MG [Suspect]
     Active Substance: CYCLOPHOSPHAMIDE
     Indication: UNDIFFERENTIATED SARCOMA
     Route: 048
     Dates: start: 201612
  20. DOXORUBICIN [Suspect]
     Active Substance: DOXORUBICIN
     Indication: UNDIFFERENTIATED SARCOMA
     Dosage: 6 ROUNDS OF VIDE CHEMOTHERAPY
     Route: 065
     Dates: start: 20130408, end: 201309

REACTIONS (8)
  - Neoplasm recurrence [Unknown]
  - Metastases to lymph nodes [Unknown]
  - Bacteraemia [Unknown]
  - Metastases to liver [Unknown]
  - Toxicity to various agents [Unknown]
  - Febrile neutropenia [Unknown]
  - Neoplasm progression [Unknown]
  - Therapy non-responder [Unknown]

NARRATIVE: CASE EVENT DATE: 201606
